FAERS Safety Report 7972833-6 (Version None)
Quarter: 2011Q4

REPORT INFORMATION
  Report Type: 
  Country: None (occurrence: None)
  Receive Date: 20111213
  Receipt Date: 20111101
  Transmission Date: 20120403
  Serious: Yes (Hospitalization)
  Sender: FDA-Public Use
  Company Number: US-ROCHE-1020759

PATIENT
  Sex: Female

DRUGS (1)
  1. AVASTIN [Suspect]
     Indication: MENINGIOMA
     Dosage: DATE OF LAST DOSE PRIOR TO SAE:26/OCT/2011
     Route: 042
     Dates: start: 20110303, end: 20111026

REACTIONS (1)
  - CONVULSION [None]
